FAERS Safety Report 8916247 (Version 4)
Quarter: 2014Q1

REPORT INFORMATION
  Report Type: Spontaneous
  Country: FR (occurrence: FR)
  Receive Date: 20121120
  Receipt Date: 20140123
  Transmission Date: 20141002
  Serious: Yes (Hospitalization, Other)
  Sender: FDA-Public Use
  Company Number: FR-ELI_LILLY_AND_COMPANY-FR201211002307

PATIENT
  Age: 63 Year
  Sex: Male
  Weight: 98 kg

DRUGS (15)
  1. ZYPREXA [Suspect]
     Indication: BIPOLAR DISORDER
     Dosage: 5 MG, BID
     Dates: start: 20101117
  2. ABILIFY [Concomitant]
     Dosage: UNK
     Dates: start: 20101215
  3. NOZINAN [Concomitant]
     Dosage: 25 MG, UNK
  4. PARACETAMOL [Concomitant]
     Dosage: 1 G, TID
  5. CITALOPRAM [Concomitant]
     Dosage: 20 MG, UNK
  6. PSYLIA [Concomitant]
     Dosage: 1 DF, QD
  7. ALFUZOSIN [Concomitant]
     Dosage: 10 MG, QD
  8. LANSOPRAZOLE [Concomitant]
     Dosage: 15 MG, QD
  9. LEVOTHYROX [Concomitant]
     Dosage: 50 DF, QD
  10. TERALITHE [Concomitant]
     Dosage: 250 MG, QID
  11. ATARAX [Concomitant]
     Dosage: 25 MG, TID
  12. TEGRETOL [Concomitant]
     Dosage: 200 MG, QD
  13. DUROGESIC [Concomitant]
     Dosage: 25 MG, QD
  14. TRANXENE [Concomitant]
     Dosage: 20 MG, QID
  15. EFFEXOR [Concomitant]

REACTIONS (39)
  - Coma [Recovered/Resolved]
  - Aggression [Recovered/Resolved]
  - Confusional state [Recovered/Resolved]
  - Panic attack [Recovered/Resolved]
  - Agitation [Recovered/Resolved]
  - Dysarthria [Recovered/Resolved]
  - Cardiac murmur [Recovered/Resolved]
  - Dyspnoea [Recovered/Resolved]
  - Muscle spasms [Recovered/Resolved]
  - Pyrexia [Recovered/Resolved]
  - Fall [Recovered/Resolved]
  - Blood glucose decreased [Recovered/Resolved]
  - Neuroleptic malignant syndrome [Recovered/Resolved]
  - Oxygen saturation decreased [Recovered/Resolved]
  - Respiratory acidosis [Recovered/Resolved]
  - Haematuria [Recovered/Resolved]
  - Overdose [Recovered/Resolved]
  - Incontinence [Recovered/Resolved]
  - Confusional state [Recovered/Resolved]
  - Hypothyroidism [Recovered/Resolved]
  - Tremor [Recovered/Resolved]
  - Anxiety [Recovered/Resolved]
  - Blood pressure abnormal [Recovered/Resolved]
  - Heart rate increased [Recovered/Resolved]
  - Miosis [Recovered/Resolved]
  - Blood creatine phosphokinase increased [Unknown]
  - Weight decreased [Recovered/Resolved]
  - Osteoarthritis [Recovered/Resolved]
  - Road traffic accident [Recovered/Resolved]
  - Back pain [Recovered/Resolved]
  - Respiratory disorder [Recovered/Resolved]
  - Insomnia [Recovered/Resolved]
  - Abnormal behaviour [Recovered/Resolved]
  - Hallucination [Recovered/Resolved]
  - Enuresis [Recovered/Resolved]
  - Urinary retention [Recovered/Resolved]
  - White blood cell count increased [Recovered/Resolved]
  - Eosinophil count increased [Recovered/Resolved]
  - Neutrophil count increased [Recovered/Resolved]
